FAERS Safety Report 18851608 (Version 1)
Quarter: 2021Q1

REPORT INFORMATION
  Report Type: Spontaneous
  Country: CN (occurrence: CN)
  Receive Date: 20210205
  Receipt Date: 20210205
  Transmission Date: 20210420
  Serious: Yes (Other)
  Sender: FDA-Public Use
  Company Number: CN-BAXTER-2021BAX002286

PATIENT
  Age: 46 Year
  Sex: Female
  Weight: 55 kg

DRUGS (4)
  1. PREDNISONE. [Suspect]
     Active Substance: PREDNISONE
     Indication: UNDIFFERENTIATED CONNECTIVE TISSUE DISEASE
     Route: 048
  2. ENDOXAN [Suspect]
     Active Substance: CYCLOPHOSPHAMIDE
     Indication: UNDIFFERENTIATED CONNECTIVE TISSUE DISEASE
     Dosage: ENDOXAN 400 MG + NORMAL SALINE (NS) 500 ML
     Route: 041
     Dates: start: 20201230, end: 20210102
  3. 0.9% SODIUM CHLORIDE INJECTION [Suspect]
     Active Substance: SODIUM CHLORIDE
     Indication: MEDICATION DILUTION
     Dosage: ENDOXAN 400 MG + NS 500 ML
     Route: 041
     Dates: start: 20201230, end: 20210102
  4. HYDROXYCHLOROQUINE [Suspect]
     Active Substance: HYDROXYCHLOROQUINE
     Indication: UNDIFFERENTIATED CONNECTIVE TISSUE DISEASE
     Route: 065

REACTIONS (2)
  - White blood cell count decreased [Unknown]
  - Platelet count decreased [Recovering/Resolving]

NARRATIVE: CASE EVENT DATE: 20210102
